FAERS Safety Report 9784071 (Version 3)
Quarter: 2014Q1

REPORT INFORMATION
  Report Type: Spontaneous
  Country: IT (occurrence: IT)
  Receive Date: 20131226
  Receipt Date: 20140213
  Transmission Date: 20141002
  Serious: Yes (Death)
  Sender: FDA-Public Use
  Company Number: PHHY2013IT149468

PATIENT
  Sex: Female

DRUGS (8)
  1. ALLOPURINOL [Suspect]
     Dosage: 300 MG, QD
     Route: 048
     Dates: start: 20131104, end: 20131120
  2. LEVOFLOXACIN TEVA [Interacting]
     Dosage: 500 MG, QD
     Route: 048
     Dates: start: 20131119, end: 20131120
  3. LEVOFLOXACIN TEVA [Interacting]
     Dates: start: 20131127, end: 20131129
  4. PIPERACILIN/TAZOBACTAM [Concomitant]
     Route: 042
     Dates: start: 20131120, end: 20131127
  5. METRONIDAZOLE [Concomitant]
     Dates: start: 20131120, end: 20131126
  6. VITAMIN K [Concomitant]
  7. FOLIC ACID [Concomitant]
  8. THIAMINE [Concomitant]

REACTIONS (2)
  - Toxic epidermal necrolysis [Fatal]
  - Drug interaction [Fatal]
